FAERS Safety Report 7326738-4 (Version None)
Quarter: 2011Q1

REPORT INFORMATION
  Report Type: 
  Country: None (occurrence: None)
  Receive Date: 20110302
  Receipt Date: 20090909
  Transmission Date: 20110831
  Serious: Yes (Other)
  Sender: FDA-Public Use
  Company Number: US-PFIZER INC-2009246525

PATIENT
  Sex: Female
  Weight: 59 kg

DRUGS (1)
  1. VFEND [Suspect]
     Dosage: UNK
     Route: 048
     Dates: start: 20090721, end: 20090722

REACTIONS (5)
  - VISUAL IMPAIRMENT [None]
  - DIARRHOEA [None]
  - HALLUCINATION [None]
  - NAUSEA [None]
  - VOMITING [None]
